FAERS Safety Report 13736247 (Version 1)
Quarter: 2017Q3

REPORT INFORMATION
  Report Type: Spontaneous
  Country: FR (occurrence: FR)
  Receive Date: 20170710
  Receipt Date: 20170710
  Transmission Date: 20171127
  Serious: Yes (Death)
  Sender: FDA-Public Use
  Company Number: FR-AUROBINDO-AUR-APL-2017-36527

PATIENT
  Age: 59 Year
  Sex: Male

DRUGS (12)
  1. ZELITREX [Suspect]
     Active Substance: VALACYCLOVIR HYDROCHLORIDE
     Indication: PRODUCT USED FOR UNKNOWN INDICATION
     Dosage: 1 DF, TWO TIMES A DAY
     Route: 048
     Dates: start: 201312, end: 20140327
  2. ORACILLINE                         /00001801/ [Suspect]
     Active Substance: PENICILLIN V
     Indication: PRODUCT USED FOR UNKNOWN INDICATION
     Dosage: 1 DF, TWO TIMES A DAY
     Route: 048
     Dates: start: 20131113, end: 20140404
  3. DESFERAL [Suspect]
     Active Substance: DEFEROXAMINE MESYLATE
     Indication: PRODUCT USED FOR UNKNOWN INDICATION
     Dosage: 600 MG, DAILY, 5 DAYS A WEEK
     Route: 058
     Dates: start: 20140222, end: 20140504
  4. ZOLPIDEM ARROW 10 MG FILM-COATED TABLETS [Suspect]
     Active Substance: ZOLPIDEM TARTRATE
     Indication: PRODUCT USED FOR UNKNOWN INDICATION
     Dosage: 1 DF, DAILY
     Route: 048
     Dates: start: 201311, end: 20140504
  5. CORTANCYL [Suspect]
     Active Substance: PREDNISONE
     Indication: PRODUCT USED FOR UNKNOWN INDICATION
     Dosage: 1 DF, ONCE A DAY
     Route: 048
     Dates: start: 201301, end: 201404
  6. LANTUS [Suspect]
     Active Substance: INSULIN GLARGINE
     Indication: PRODUCT USED FOR UNKNOWN INDICATION
     Dosage: 22 UI, ONCE A DAY
     Route: 058
     Dates: start: 20131226, end: 201404
  7. DECTANCYL [Suspect]
     Active Substance: DEXAMETHASONE
     Indication: PRODUCT USED FOR UNKNOWN INDICATION
     Dosage: 1 MG, ONCE A DAY
     Route: 048
     Dates: start: 20140309, end: 20140310
  8. FINASTERIDE ARROW LAB 5MG FILM COATED TABLETS [Suspect]
     Active Substance: FINASTERIDE
     Indication: PRODUCT USED FOR UNKNOWN INDICATION
     Dosage: 1 DF, ONCE A DAY
     Route: 048
     Dates: start: 20140219, end: 20140504
  9. PAROXETINE ARROW 20 MG FILM-COATED TABLETS [Suspect]
     Active Substance: PAROXETINE
     Indication: PRODUCT USED FOR UNKNOWN INDICATION
     Dosage: 1 DF, ONCE A DAY
     Route: 048
     Dates: start: 20131113, end: 20140504
  10. BACTRIM [Suspect]
     Active Substance: SULFAMETHOXAZOLE\TRIMETHOPRIM
     Indication: PRODUCT USED FOR UNKNOWN INDICATION
     Dosage: 1 DF, 3 TIMES IN A WEEK
     Route: 048
     Dates: start: 20131115, end: 20140602
  11. NEORAL [Suspect]
     Active Substance: CYCLOSPORINE
     Indication: PRODUCT USED FOR UNKNOWN INDICATION
     Dosage: 80 MG, TWO TIMES A DAY
     Route: 048
     Dates: start: 20131022, end: 20140602
  12. ARANESP [Suspect]
     Active Substance: DARBEPOETIN ALFA
     Indication: PRODUCT USED FOR UNKNOWN INDICATION
     Dosage: 1 DF, ONCE A DAY
     Route: 058
     Dates: start: 20140221, end: 20140512

REACTIONS (1)
  - Encephalopathy [Fatal]

NARRATIVE: CASE EVENT DATE: 20140310
